FAERS Safety Report 5715221-5 (Version None)
Quarter: 2008Q2

REPORT INFORMATION
  Report Type: 
  Country: None (occurrence: None)
  Receive Date: 20080422
  Receipt Date: 20080415
  Transmission Date: 20081010
  Serious: Yes (Death, Hospitalization, Other)
  Sender: FDA-Public Use
  Company Number: 2008US000680

PATIENT
  Age: 47 Year
  Sex: Female

DRUGS (27)
  1. PROGRAF [Suspect]
     Indication: LUNG TRANSPLANT
     Dosage: 2 MG, BID, ORAL
     Route: 048
     Dates: start: 20060212
  2. PREDNISOLONE ACETATE [Concomitant]
  3. AZITHROMYCIN [Concomitant]
  4. MAXALT [Concomitant]
  5. FERROUS SULFATE (FERRUS SULFATE) [Concomitant]
  6. PROTONIX [Concomitant]
  7. ARANESP [Concomitant]
  8. VITAMIN B-12 [Concomitant]
  9. BUDESONIDE [Concomitant]
  10. COLACE (DOCUSATE SODIUM) [Concomitant]
  11. INSULIN, REGULAR (INSULIN) [Concomitant]
  12. LEVALBUTEROL HYDROCHLORIDE (LEVOSALBUTAMOL HYDROCHLORIDE) [Concomitant]
  13. NYSTATIN [Concomitant]
  14. BACTRIM [Concomitant]
  15. TOPAMAX [Concomitant]
  16. MAGNESIUM GLUCONATE (MAGNESIUM GLUCONATE) [Concomitant]
  17. OXYGEN (OXYGEN) [Concomitant]
  18. CELEXA [Concomitant]
  19. CLONIDINE [Concomitant]
  20. SYNTHROID [Concomitant]
  21. LOPRESSOR [Concomitant]
  22. LOVENOX [Concomitant]
  23. FENTANYL CITRATE [Concomitant]
  24. REGLAN [Concomitant]
  25. ZOFRAN [Concomitant]
  26. SENNA (SENNA ALEXANDRINA) [Concomitant]
  27. COUMADIN [Concomitant]

REACTIONS (19)
  - ACTIVATED PARTIAL THROMBOPLASTIN TIME PROLONGED [None]
  - CARDIAC ARREST [None]
  - CATATONIA [None]
  - CATHETER BACTERAEMIA [None]
  - CONSTIPATION [None]
  - DEPRESSION [None]
  - HAEMATOCRIT DECREASED [None]
  - HAEMOGLOBIN DECREASED [None]
  - HEADACHE [None]
  - INTERNATIONAL NORMALISED RATIO INCREASED [None]
  - LUNG TRANSPLANT REJECTION [None]
  - MENTAL STATUS CHANGES [None]
  - NAUSEA [None]
  - OBLITERATIVE BRONCHIOLITIS [None]
  - PLATELET COUNT DECREASED [None]
  - PROTHROMBIN TIME PROLONGED [None]
  - RENAL FAILURE [None]
  - RESPIRATORY FAILURE [None]
  - VOMITING [None]
